FAERS Safety Report 11794841 (Version 2)
Quarter: 2015Q4

REPORT INFORMATION
  Report Type: Spontaneous
  Country: US (occurrence: US)
  Receive Date: 20151202
  Receipt Date: 20151228
  Transmission Date: 20160305
  Serious: Yes (Hospitalization)
  Sender: FDA-Public Use
  Company Number: US-SA-2015SA183710

PATIENT
  Age: 61 Year
  Sex: Female
  Weight: 144 kg

DRUGS (5)
  1. HUMALOG [Concomitant]
     Active Substance: INSULIN LISPRO
  2. LYRICA [Suspect]
     Active Substance: PREGABALIN
     Indication: PAIN IN EXTREMITY
     Route: 065
     Dates: start: 201407, end: 201510
  3. POTASSIUM [Concomitant]
     Active Substance: POTASSIUM
     Dosage: ERTB SAND
     Route: 065
  4. LASIX [Suspect]
     Active Substance: FUROSEMIDE
     Indication: SWELLING
     Dosage: FREQUENCY: TWICE A DAY AS NEEDED; ONLY ONCE A WEEK IF THAT
     Route: 065
  5. RANITIDINE [Concomitant]
     Active Substance: RANITIDINE\RANITIDINE HYDROCHLORIDE

REACTIONS (17)
  - Blood urine present [Recovered/Resolved]
  - Diarrhoea [Not Recovered/Not Resolved]
  - Gait disturbance [Not Recovered/Not Resolved]
  - Back pain [Not Recovered/Not Resolved]
  - Drug dose omission [Unknown]
  - Lymphoedema [Recovered/Resolved]
  - Contusion [Recovered/Resolved]
  - Blood glucose increased [Recovered/Resolved]
  - Swelling [Recovered/Resolved]
  - Weight increased [Recovered/Resolved]
  - Pruritus [Unknown]
  - Urinary incontinence [Recovered/Resolved]
  - Cough [Recovered/Resolved]
  - Pollakiuria [Not Recovered/Not Resolved]
  - Cognitive disorder [Not Recovered/Not Resolved]
  - Pigmentation disorder [Recovered/Resolved]
  - Paraesthesia [Not Recovered/Not Resolved]

NARRATIVE: CASE EVENT DATE: 201507
